FAERS Safety Report 8337849-9 (Version None)
Quarter: 2012Q2

REPORT INFORMATION
  Report Type: 
  Country: None (occurrence: None)
  Receive Date: 20120504
  Receipt Date: 20120424
  Transmission Date: 20120825
  Serious: Yes (Hospitalization)
  Sender: FDA-Public Use
  Company Number: US-ELI_LILLY_AND_COMPANY-US201107006588

PATIENT
  Sex: Female

DRUGS (18)
  1. TIZANIDINE HCL [Concomitant]
  2. OMEPRAZOLE [Concomitant]
  3. LEVOSALBUTAMOL [Concomitant]
  4. COLACE [Concomitant]
  5. CYMBALTA [Concomitant]
  6. PERCOCET [Concomitant]
  7. XANAX [Concomitant]
  8. VERAPAMIL [Concomitant]
  9. FORTEO [Suspect]
     Dosage: 20 UG, QD
     Route: 065
  10. BACID [Concomitant]
  11. PREDNISONE TAB [Concomitant]
  12. DOXYCYCLINE [Concomitant]
  13. FORTEO [Suspect]
     Indication: OSTEOPOROSIS
     Dosage: 20 UG, QD
     Route: 065
     Dates: start: 20110101
  14. FORTEO [Suspect]
     Dosage: 20 UG, QD
     Route: 065
  15. ADVAIR DISKUS 100/50 [Concomitant]
  16. SPIRIVA [Concomitant]
  17. METFORMIN HCL [Concomitant]
  18. FOLIC ACID [Concomitant]

REACTIONS (8)
  - EMPHYSEMA [None]
  - MOVEMENT DISORDER [None]
  - BLOOD CALCIUM DECREASED [None]
  - BLOOD POTASSIUM ABNORMAL [None]
  - DYSPNOEA [None]
  - PARAESTHESIA [None]
  - BRONCHOPULMONARY ASPERGILLOSIS [None]
  - PAIN IN EXTREMITY [None]
